FAERS Safety Report 23287851 (Version 2)
Quarter: 2023Q4

REPORT INFORMATION
  Report Type: Spontaneous
  Country: AT (occurrence: AT)
  Receive Date: 20231212
  Receipt Date: 20231215
  Transmission Date: 20240110
  Serious: Yes (Other)
  Sender: FDA-Public Use
  Company Number: AT-DSJP-DSE-2023-151023

PATIENT
  Age: 73 Year
  Sex: Male

DRUGS (1)
  1. EDOXABAN [Suspect]
     Active Substance: EDOXABAN
     Indication: Atrial fibrillation
     Dosage: 60 MG
     Route: 065

REACTIONS (7)
  - Cardiac failure chronic [Unknown]
  - Ejection fraction decreased [Recovered/Resolved]
  - Atrial fibrillation [Unknown]
  - Mitral valve incompetence [Unknown]
  - Aortic valve incompetence [Unknown]
  - Performance status decreased [Unknown]
  - Left ventricular hypertrophy [Unknown]
